FAERS Safety Report 9449280 (Version 1)
Quarter: 2013Q3

REPORT INFORMATION
  Report Type: Spontaneous
  Country: GB (occurrence: GB)
  Receive Date: 20130808
  Receipt Date: 20130808
  Transmission Date: 20140515
  Serious: Yes (Life-Threatening)
  Sender: FDA-Public Use
  Company Number: GB-WATSON-2013-14069

PATIENT
  Age: 44 Year
  Sex: Female

DRUGS (6)
  1. AMOXICILLIN-CLAVULANATE (UNKNOWN) [Suspect]
     Indication: SURGERY
     Dosage: 1.2 G, UNK
     Route: 042
     Dates: start: 20130701, end: 20130701
  2. ATRACURIUM BESYLATE (WATSON LABORATORIES) [Suspect]
     Indication: ANAESTHESIA
     Dosage: 50 MG, UNK
     Route: 042
     Dates: start: 20130701, end: 20130701
  3. PROPOFOL [Concomitant]
     Indication: ANAESTHESIA
     Dosage: 200 MG, UNK
     Route: 065
     Dates: start: 20130701, end: 20130701
  4. FENTANYL [Concomitant]
     Indication: ANAESTHESIA
     Dosage: 300 MG, UNK
     Route: 065
     Dates: start: 20130701, end: 20130701
  5. ONDANSETRON [Concomitant]
     Indication: ANAESTHESIA
     Dosage: 4 MG, UNK
     Route: 065
     Dates: start: 20130701, end: 20130701
  6. DEXAMETHASONE [Concomitant]
     Indication: ANAESTHESIA
     Dosage: 4 MG, UNK
     Route: 065
     Dates: start: 20130701, end: 20130701

REACTIONS (2)
  - Stridor [Unknown]
  - Rash [Unknown]
